FAERS Safety Report 21509389 (Version 3)
Quarter: 2022Q4

REPORT INFORMATION
  Report Type: Spontaneous
  Country: US (occurrence: US)
  Receive Date: 20221026
  Receipt Date: 20221118
  Transmission Date: 20230113
  Serious: No
  Sender: FDA-Public Use
  Company Number: US-PFIZER INC-202201256252

PATIENT
  Age: 81 Year
  Sex: Female
  Weight: 95.25 kg

DRUGS (3)
  1. PAXLOVID [Suspect]
     Active Substance: NIRMATRELVIR\RITONAVIR
     Indication: COVID-19 treatment
     Dosage: [PF-07321332 300 MG]/[RITONAVIR 100 MG]; 2X/DAY
     Route: 048
     Dates: start: 20221017, end: 202210
  2. SINGULAIR [Concomitant]
     Active Substance: MONTELUKAST SODIUM
     Indication: Asthma
     Dosage: 10 MG, DAILY (TAKING FOR YEARS)
  3. ALERTEC [CETIRIZINE HYDROCHLORIDE] [Concomitant]
     Indication: Hypersensitivity
     Dosage: 10 MG, 1X/DAY (TAKING FOR YEARS)

REACTIONS (8)
  - Secretion discharge [Recovering/Resolving]
  - Palpitations [Not Recovered/Not Resolved]
  - Head discomfort [Recovering/Resolving]
  - Productive cough [Recovering/Resolving]
  - Choking sensation [Recovering/Resolving]
  - Malaise [Unknown]
  - Illness [Unknown]
  - Rhinorrhoea [Unknown]

NARRATIVE: CASE EVENT DATE: 20221001
